FAERS Safety Report 12596500 (Version 1)
Quarter: 2016Q3

REPORT INFORMATION
  Report Type: Spontaneous
  Country: US (occurrence: US)
  Receive Date: 20160727
  Receipt Date: 20160727
  Transmission Date: 20161109
  Serious: Yes (Other)
  Sender: FDA-Public Use
  Company Number: US-AUROBINDO-AUR-APL-2016-09546

PATIENT

DRUGS (2)
  1. PRAMIPEXOLE 1.5MG [Suspect]
     Active Substance: PRAMIPEXOLE
     Indication: PARKINSON^S DISEASE
     Dosage: 1.5 MG, 3 TIMES A DAY
     Route: 048
  2. PRAMIPEXOLE 1.5MG [Suspect]
     Active Substance: PRAMIPEXOLE
     Dosage: 0.75 MG, 3 TIMES A DAY
     Route: 048

REACTIONS (9)
  - Drug withdrawal syndrome [Recovered/Resolved]
  - Abnormal behaviour [Recovered/Resolved]
  - Communication disorder [None]
  - Anxiety [Recovered/Resolved]
  - Amnesia [None]
  - Insomnia [Recovered/Resolved]
  - Somnolence [Recovered/Resolved]
  - Panic attack [Recovered/Resolved]
  - Neuropsychological test abnormal [None]
